FAERS Safety Report 21089068 (Version 5)
Quarter: 2024Q1

REPORT INFORMATION
  Report Type: Report from Study
  Country: PA (occurrence: PA)
  Receive Date: 20220715
  Receipt Date: 20240321
  Transmission Date: 20240410
  Serious: Yes (Other)
  Sender: FDA-Public Use
  Company Number: PA-NOVARTISPH-NVSC2022PA160409

PATIENT
  Sex: Female

DRUGS (3)
  1. KISQALI [Suspect]
     Active Substance: RIBOCICLIB
     Indication: Breast cancer metastatic
     Dosage: 3 DOSAGE FORM, QD
     Route: 048
     Dates: start: 202102
  2. KISQALI [Suspect]
     Active Substance: RIBOCICLIB
     Dosage: 400 MG, QD
     Route: 048
     Dates: start: 202102, end: 202403
  3. ANASTROZOLE [Suspect]
     Active Substance: ANASTROZOLE
     Indication: Product used for unknown indication
     Dosage: UNK
     Route: 065

REACTIONS (18)
  - Metastases to lung [Unknown]
  - Breast cancer metastatic [Unknown]
  - Malignant neoplasm progression [Unknown]
  - Intervertebral disc protrusion [Unknown]
  - Amnesia [Unknown]
  - Bone pain [Unknown]
  - Drug intolerance [Recovering/Resolving]
  - Neoplasm [Unknown]
  - Abdominal discomfort [Recovering/Resolving]
  - Flatulence [Unknown]
  - Feeling abnormal [Unknown]
  - Gastritis [Unknown]
  - Pain [Unknown]
  - Spinal pain [Unknown]
  - Nausea [Unknown]
  - Vomiting [Unknown]
  - Headache [Unknown]
  - Alopecia [Unknown]
